FAERS Safety Report 11524867 (Version 2)
Quarter: 2015Q3

REPORT INFORMATION
  Report Type: Report from Study
  Country: JP (occurrence: JP)
  Receive Date: 20150918
  Receipt Date: 20150924
  Transmission Date: 20151125
  Serious: Yes (Hospitalization)
  Sender: FDA-Public Use
  Company Number: JP-ROCHE-1632986

PATIENT
  Age: 65 Year
  Sex: Female
  Weight: 38.55 kg

DRUGS (13)
  1. TRASTUZUMAB [Suspect]
     Active Substance: TRASTUZUMAB
     Indication: HER-2 POSITIVE BREAST CANCER
     Route: 041
     Dates: start: 20150827
  2. DOCETAXEL. [Suspect]
     Active Substance: DOCETAXEL
     Indication: HER-2 POSITIVE BREAST CANCER
     Route: 041
     Dates: start: 20150827
  3. CARBOPLATIN. [Suspect]
     Active Substance: CARBOPLATIN
     Indication: HER-2 POSITIVE BREAST CANCER
     Route: 041
     Dates: start: 20150827
  4. BIOFERMIN [Concomitant]
     Active Substance: BACILLUS SUBTILIS\LACTOBACILLUS ACIDOPHILUS\STREPTOCOCCUS FAECAIS
     Indication: DIARRHOEA
     Dosage: AT THE VOMITURITION
     Route: 048
     Dates: start: 20150829, end: 20150829
  5. PERTUZUMAB [Suspect]
     Active Substance: PERTUZUMAB
     Indication: HER-2 POSITIVE BREAST CANCER
     Route: 041
     Dates: start: 20150827
  6. RIZE (JAPAN) [Concomitant]
     Indication: INSOMNIA
     Dosage: AT THE SLEEP LOSS
     Route: 048
     Dates: start: 20150902, end: 20150902
  7. DECADRON [Concomitant]
     Active Substance: DEXAMETHASONE
     Indication: NAUSEA
     Dosage: AFTER THE MEAL IN THE MORNING AND EVENING
     Route: 048
     Dates: start: 20150828, end: 20150830
  8. NOVAMIN (JAPAN) [Concomitant]
     Indication: NAUSEA
     Dosage: AT THE VOMITURITION
     Route: 048
     Dates: start: 20150828
  9. WYPAX [Concomitant]
     Active Substance: LORAZEPAM
     Indication: NAUSEA
     Dosage: AT THE VOMITURITION
     Route: 048
     Dates: start: 20150828
  10. CALONAL [Concomitant]
     Active Substance: ACETAMINOPHEN
     Indication: HEADACHE
     Dosage: AT THE THERMACOGENESIS PAIN
     Route: 048
     Dates: start: 20150902, end: 20150902
  11. SOLDEM 3AG [Concomitant]
     Indication: DEHYDRATION
     Route: 041
     Dates: start: 20150901, end: 20150903
  12. PRIMPERAN [Concomitant]
     Active Substance: METOCLOPRAMIDE HYDROCHLORIDE
     Indication: NAUSEA
     Dosage: AT THE VOMITURITION
     Route: 048
     Dates: start: 20150828
  13. EMEND [Concomitant]
     Active Substance: APREPITANT
     Indication: NAUSEA
     Dosage: AFTER THE BREAKFAST
     Route: 048
     Dates: start: 20150828, end: 20150829

REACTIONS (2)
  - Dehydration [Recovered/Resolved]
  - Hyponatraemia [Recovered/Resolved]

NARRATIVE: CASE EVENT DATE: 20150903
